FAERS Safety Report 4792914-8 (Version None)
Quarter: 2005Q4

REPORT INFORMATION
  Report Type: 
  Country: None (occurrence: None)
  Receive Date: 20051010
  Receipt Date: 20050209
  Transmission Date: 20060501
  Serious: Yes (Death)
  Sender: FDA-Public Use
  Company Number: GB-ROCHE-395026

PATIENT
  Age: 21 Year
  Sex: Male
  Weight: 80 kg

DRUGS (3)
  1. ROACCUTANE [Suspect]
     Route: 048
     Dates: start: 20041130
  2. ROACCUTANE [Suspect]
     Route: 048
  3. ROACCUTANE [Suspect]
     Route: 048
     Dates: start: 20050104

REACTIONS (10)
  - ABNORMAL BEHAVIOUR [None]
  - ACNE [None]
  - ANOREXIA [None]
  - COMPLETED SUICIDE [None]
  - DEPRESSION [None]
  - FATIGUE [None]
  - INSOMNIA [None]
  - LIP DRY [None]
  - MENTAL IMPAIRMENT [None]
  - PSYCHOTIC DISORDER [None]
